FAERS Safety Report 14669264 (Version 1)
Quarter: 2018Q1

REPORT INFORMATION
  Report Type: Spontaneous
  Country: ES (occurrence: ES)
  Receive Date: 20180322
  Receipt Date: 20180322
  Transmission Date: 20180509
  Serious: Yes (Hospitalization)
  Sender: FDA-Public Use
  Company Number: ES-JNJFOC-20180321885

PATIENT
  Age: 85 Year
  Sex: Female

DRUGS (9)
  1. VILDAGLIPTIN [Concomitant]
     Active Substance: VILDAGLIPTIN
     Route: 048
     Dates: start: 20160101
  2. ATORVASTATIN [Concomitant]
     Active Substance: ATORVASTATIN
     Route: 048
     Dates: start: 20160101
  3. ABSTRAL [Interacting]
     Active Substance: FENTANYL CITRATE
     Indication: SCIATICA
     Route: 048
     Dates: start: 20170617, end: 20170629
  4. PANTOPRAZOL [Concomitant]
     Active Substance: PANTOPRAZOLE SODIUM
     Route: 048
     Dates: start: 20160101
  5. DUROGESIC [Suspect]
     Active Substance: FENTANYL
     Indication: SCIATICA
     Route: 062
     Dates: start: 20170506, end: 20170630
  6. AMLODIPINE [Concomitant]
     Active Substance: AMLODIPINE BESYLATE
     Route: 048
     Dates: start: 20160101
  7. PRISTIQ EXTENDED-RELEASE [Concomitant]
     Active Substance: DESVENLAFAXINE SUCCINATE
     Route: 048
     Dates: start: 20170313, end: 20170630
  8. TIRODRIL [Concomitant]
     Active Substance: METHIMAZOLE
     Route: 048
     Dates: start: 20160101, end: 20170630
  9. METFORMIN [Concomitant]
     Active Substance: METFORMIN HYDROCHLORIDE
     Route: 048
     Dates: start: 20160101

REACTIONS (5)
  - Respiratory acidosis [Recovered/Resolved]
  - Drug interaction [Recovered/Resolved]
  - Respiratory failure [Recovered/Resolved]
  - Bradycardia [Recovered/Resolved]
  - Confusional state [Recovered/Resolved]

NARRATIVE: CASE EVENT DATE: 20170629
